FAERS Safety Report 8338247-4 (Version None)
Quarter: 2012Q2

REPORT INFORMATION
  Report Type: 
  Country: None (occurrence: None)
  Receive Date: 20120504
  Receipt Date: 20120501
  Transmission Date: 20120825
  Serious: Yes (Hospitalization, Other)
  Sender: FDA-Public Use
  Company Number: US-MERCK-1203USA00331

PATIENT
  Age: 60 Year
  Sex: Male
  Weight: 94 kg

DRUGS (19)
  1. ACCUPRIL [Concomitant]
     Route: 048
  2. SCHIFF OMEGA-3 FISH OIL [Concomitant]
     Route: 048
  3. NITROGLYCERIN [Concomitant]
     Route: 048
  4. ATIVAN [Concomitant]
     Indication: ANXIETY
     Route: 065
  5. LANTUS [Concomitant]
     Route: 065
  6. MS CONTIN [Concomitant]
     Route: 065
  7. TOPROL-XL [Concomitant]
     Route: 065
  8. JANUVIA [Suspect]
     Indication: TYPE 2 DIABETES MELLITUS
     Route: 048
     Dates: start: 20070201, end: 20120227
  9. LASIX [Concomitant]
     Route: 048
  10. CULTURELLE [Concomitant]
     Indication: IRRITABLE BOWEL SYNDROME
     Route: 048
  11. NEXIUM [Concomitant]
     Route: 048
  12. LYRICA [Concomitant]
     Route: 065
  13. ASPIRIN [Concomitant]
     Route: 048
  14. CRESTOR [Concomitant]
     Route: 048
  15. LYRICA [Concomitant]
     Route: 065
  16. TRICOR [Concomitant]
     Route: 065
  17. IMODIUM [Concomitant]
     Indication: DIARRHOEA
     Route: 048
  18. NOVOLIN R [Concomitant]
     Route: 065
  19. RESTORIL (CHLORMEZANONE) [Concomitant]
     Route: 048

REACTIONS (8)
  - MUSCULOSKELETAL CHEST PAIN [None]
  - ANXIETY [None]
  - GASTROOESOPHAGEAL REFLUX DISEASE [None]
  - CATARACT [None]
  - TREATMENT NONCOMPLIANCE [None]
  - DIABETIC GASTROPARESIS [None]
  - BUNDLE BRANCH BLOCK RIGHT [None]
  - CONDITION AGGRAVATED [None]
